FAERS Safety Report 10345310 (Version 5)
Quarter: 2016Q1

REPORT INFORMATION
  Report Type: Report from Study
  Country: US (occurrence: US)
  Receive Date: 20140728
  Receipt Date: 20160219
  Transmission Date: 20160525
  Serious: Yes (Other)
  Sender: FDA-Public Use
  Company Number: US-SA-2014SA098281

PATIENT
  Age: 69 Year
  Sex: Female

DRUGS (3)
  1. AUBAGIO [Suspect]
     Active Substance: TERIFLUNOMIDE
     Indication: MULTIPLE SCLEROSIS
     Route: 048
     Dates: start: 20140406
  2. AUBAGIO [Suspect]
     Active Substance: TERIFLUNOMIDE
     Indication: MULTIPLE SCLEROSIS
     Route: 048
     Dates: start: 20140406
  3. AVONEX [Concomitant]
     Active Substance: INTERFERON BETA-1A
     Indication: MULTIPLE SCLEROSIS
     Dates: start: 19970101, end: 20140401

REACTIONS (10)
  - Chest discomfort [Unknown]
  - Insomnia [Unknown]
  - Atrial fibrillation [Unknown]
  - Central nervous system lesion [Not Recovered/Not Resolved]
  - Upper limb fracture [Recovered/Resolved]
  - Fall [Unknown]
  - Cough [Unknown]
  - Gait disturbance [Unknown]
  - Rotator cuff syndrome [Recovered/Resolved]
  - Motor dysfunction [Unknown]

NARRATIVE: CASE EVENT DATE: 201509
